FAERS Safety Report 19354758 (Version 1)
Quarter: 2021Q2

REPORT INFORMATION
  Report Type: Spontaneous
  Country: FR (occurrence: FR)
  Receive Date: 20210531
  Receipt Date: 20210531
  Transmission Date: 20210717
  Serious: Yes (Hospitalization)
  Sender: FDA-Public Use
  Company Number: NVSC2021FR116832

PATIENT
  Age: 76 Year
  Sex: Female
  Weight: 74.7 kg

DRUGS (9)
  1. PAROXETINA ALMUS [Concomitant]
     Indication: DEPRESSION
     Dosage: 0.5 DF, QD
     Route: 048
     Dates: start: 20210430
  2. LEVETIRACETAM. [Concomitant]
     Active Substance: LEVETIRACETAM
     Indication: TONIC CLONIC MOVEMENTS
     Dosage: 500 MG, Q12H
     Route: 042
     Dates: start: 20210429, end: 20210430
  3. METRONIDAZOLE. [Concomitant]
     Active Substance: METRONIDAZOLE
     Indication: ENCEPHALITIS
     Dosage: 500 MG, Q8H
     Route: 042
     Dates: start: 20210503
  4. AMOXICILLINE [Suspect]
     Active Substance: AMOXICILLIN
     Indication: SINUSITIS
     Dosage: 2 G, Q4H
     Route: 041
     Dates: start: 20210429, end: 20210510
  5. AMLODIPINE [Concomitant]
     Active Substance: AMLODIPINE BESYLATE
     Indication: HYPERTENSION
     Dosage: 10 MG,QD
     Route: 048
     Dates: start: 20210505
  6. ACEBUTOLOL [Concomitant]
     Active Substance: ACEBUTOLOL
     Indication: HYPERTENSION
     Dosage: 200 MG (12 HRS)
     Route: 065
     Dates: start: 20210504, end: 20210511
  7. LEVOFLOXACINE [Suspect]
     Active Substance: LEVOFLOXACIN
     Indication: SINUSITIS
     Dosage: 500 MG,(12 HRS)
     Route: 048
     Dates: start: 20210429
  8. COAPROVEL [Concomitant]
     Active Substance: HYDROCHLOROTHIAZIDE\IRBESARTAN
     Indication: HYPERTENSION
     Dosage: 1 DF, QD
     Route: 048
     Dates: start: 20210430
  9. ACICLOVIR [Suspect]
     Active Substance: ACYCLOVIR
     Indication: ENCEPHALITIS
     Dosage: 10 MG/KG, Q8H
     Route: 041
     Dates: start: 20210429, end: 20210430

REACTIONS (1)
  - Acute kidney injury [Recovering/Resolving]

NARRATIVE: CASE EVENT DATE: 20210509
